FAERS Safety Report 5412457-8 (Version None)
Quarter: 2007Q3

REPORT INFORMATION
  Report Type: 
  Country: None (occurrence: None)
  Receive Date: 20070813
  Receipt Date: 20070809
  Transmission Date: 20080115
  Serious: Yes (Death)
  Sender: FDA-Public Use
  Company Number: DE-BRISTOL-MYERS SQUIBB COMPANY-13874326

PATIENT
  Age: 61 Year
  Sex: Female

DRUGS (2)
  1. CETUXIMAB [Suspect]
     Indication: NON-SMALL CELL LUNG CANCER
     Dosage: INITIAL DOSE-400 MG/M2,1 IN 1 WEEK
     Route: 042
     Dates: start: 20060912, end: 20061004
  2. GEMCITABINE HCL [Suspect]
     Indication: NON-SMALL CELL LUNG CANCER
     Dosage: 400MG/M2 1 IN 1 WK FROM 12SEP06 TO UNKNOWN; 390MG/M2 FROM UNKNOWN- 04OCT06
     Route: 040
     Dates: start: 20060912, end: 20061004

REACTIONS (1)
  - PULMONARY EMBOLISM [None]
